FAERS Safety Report 10037996 (Version 2)
Quarter: 2014Q1

REPORT INFORMATION
  Report Type: Spontaneous
  Country: SE (occurrence: SE)
  Receive Date: 20140326
  Receipt Date: 20140326
  Transmission Date: 20141002
  Serious: Yes (Hospitalization)
  Sender: FDA-Public Use
  Company Number: SE-PFIZER INC-2014007377

PATIENT
  Age: 43 Year
  Sex: Female

DRUGS (1)
  1. SALAZOPYRIN [Suspect]
     Indication: RHEUMATOID ARTHRITIS
     Dosage: UNK
     Route: 048
     Dates: start: 20131116, end: 20131203

REACTIONS (8)
  - Dermatitis exfoliative [Not Recovered/Not Resolved]
  - Transaminases increased [Recovering/Resolving]
  - Pyrexia [Unknown]
  - Blood pressure abnormal [Recovered/Resolved]
  - Hypersensitivity [Unknown]
  - Rash generalised [Recovered/Resolved]
  - Vomiting [Unknown]
  - Paraesthesia [Unknown]
